FAERS Safety Report 24973577 (Version 1)
Quarter: 2025Q1

REPORT INFORMATION
  Report Type: Spontaneous
  Country: US (occurrence: US)
  Receive Date: 20250217
  Receipt Date: 20250217
  Transmission Date: 20250408
  Serious: Yes (Life-Threatening, Hospitalization, Other)
  Sender: Norvium Bioscience
  Company Number: US-Norvium Bioscience LLC-079765

PATIENT
  Sex: Male
  Weight: 2.85 kg

DRUGS (10)
  1. FROVATRIPTAN SUCCINATE [Suspect]
     Active Substance: FROVATRIPTAN SUCCINATE
     Indication: Migraine
     Route: 064
  2. LIDOCAINE [Concomitant]
     Active Substance: LIDOCAINE
     Indication: Migraine prophylaxis
     Route: 064
     Dates: start: 20240118
  3. PROPRANOLOL [Concomitant]
     Active Substance: PROPRANOLOL HYDROCHLORIDE
     Indication: Migraine prophylaxis
     Dosage: 20-30 MG
     Route: 064
     Dates: start: 20240118
  4. AMITRIPTYLINE [Concomitant]
     Active Substance: AMITRIPTYLINE
     Indication: Migraine prophylaxis
     Dosage: 40-50 MG
     Route: 064
     Dates: start: 20231115
  5. BOTOX [Concomitant]
     Active Substance: ONABOTULINUMTOXINA
     Indication: Migraine prophylaxis
     Route: 064
     Dates: start: 20231016
  6. NURTEC ODT [Concomitant]
     Active Substance: RIMEGEPANT SULFATE
     Indication: Migraine prophylaxis
     Route: 064
     Dates: start: 202208, end: 20240118
  7. TYLENOL [Concomitant]
     Active Substance: ACETAMINOPHEN
     Indication: Migraine
     Route: 064
  8. ADVIL [Concomitant]
     Active Substance: IBUPROFEN
     Indication: Migraine
     Route: 064
  9. MAXALT [Concomitant]
     Active Substance: RIZATRIPTAN BENZOATE
     Indication: Migraine
     Route: 064
  10. NURTEC ODT [Concomitant]
     Active Substance: RIMEGEPANT SULFATE
     Indication: Migraine
     Route: 064

REACTIONS (3)
  - Foetal exposure during pregnancy [Unknown]
  - Cerebral infarction [Recovering/Resolving]
  - Peripheral artery thrombosis [Recovering/Resolving]

NARRATIVE: CASE EVENT DATE: 20240712
